FAERS Safety Report 14447041 (Version 1)
Quarter: 2018Q1

REPORT INFORMATION
  Report Type: Spontaneous
  Country: US (occurrence: US)
  Receive Date: 20180126
  Receipt Date: 20180126
  Transmission Date: 20180509
  Serious: Yes (Other)
  Sender: FDA-Public Use
  Company Number: US-PFIZER INC-2018032624

PATIENT
  Age: 57 Year
  Sex: Female
  Weight: 88.45 kg

DRUGS (11)
  1. LYRICA [Suspect]
     Active Substance: PREGABALIN
     Indication: SJOGREN^S SYNDROME
  2. NUCYNTA [Concomitant]
     Active Substance: TAPENTADOL HYDROCHLORIDE
     Indication: PAIN MANAGEMENT
     Dosage: UNK UNK, 2X/DAY
  3. VITAMIN D3 [Concomitant]
     Active Substance: CHOLECALCIFEROL
     Indication: HYPOVITAMINOSIS
     Dosage: 5000 IU, DAILY(5,000UNIT GELCAP, 1 DAILY)
  4. CYANOCOBALAMIN. [Concomitant]
     Active Substance: CYANOCOBALAMIN
     Indication: HYPOVITAMINOSIS
     Dosage: 1000 UG, MONTHLY(1,000MCG IM INJECTION ONCE A MONTH)
     Route: 030
  5. LYRICA [Suspect]
     Active Substance: PREGABALIN
     Indication: RAYNAUD^S PHENOMENON
  6. LEVOTHYROXINE. [Concomitant]
     Active Substance: LEVOTHYROXINE
     Indication: HYPOTHYROIDISM
     Dosage: 137 UG, DAILY
  7. LYRICA [Suspect]
     Active Substance: PREGABALIN
     Indication: FIBROMYALGIA
     Dosage: 25 MG, 2X/DAY
     Route: 048
     Dates: start: 2017
  8. LYRICA [Suspect]
     Active Substance: PREGABALIN
     Indication: ANKYLOSING SPONDYLITIS
  9. DULOXETINE. [Concomitant]
     Active Substance: DULOXETINE
     Indication: PAIN MANAGEMENT
     Dosage: 30 MG, DAILY
  10. HUMIRA [Concomitant]
     Active Substance: ADALIMUMAB
     Indication: PSORIATIC ARTHROPATHY
     Dosage: 40 MG, WEEKLY(40MG, INJECTION ONCE A WEEK)
  11. LYRICA [Suspect]
     Active Substance: PREGABALIN
     Indication: PSORIATIC ARTHROPATHY

REACTIONS (13)
  - Restless legs syndrome [Not Recovered/Not Resolved]
  - Pain [Not Recovered/Not Resolved]
  - Drug dose omission [Unknown]
  - Inflammation [Not Recovered/Not Resolved]
  - Discomfort [Not Recovered/Not Resolved]
  - Bone disorder [Unknown]
  - Foot fracture [Recovering/Resolving]
  - Crying [Unknown]
  - Poor quality sleep [Not Recovered/Not Resolved]
  - Burning sensation [Not Recovered/Not Resolved]
  - Underdose [Unknown]
  - Arthralgia [Not Recovered/Not Resolved]
  - Emotional disorder [Unknown]

NARRATIVE: CASE EVENT DATE: 2017
